FAERS Safety Report 5839842-4 (Version None)
Quarter: 2008Q3

REPORT INFORMATION
  Report Type: 
  Country: None (occurrence: None)
  Receive Date: 20080811
  Receipt Date: 20080731
  Transmission Date: 20090109
  Serious: Yes (Life-Threatening, Hospitalization, Other)
  Sender: FDA-Public Use
  Company Number: DK-JNJFOC-20080403878

PATIENT
  Sex: Female
  Weight: 80 kg

DRUGS (8)
  1. REMICADE [Suspect]
     Indication: RHEUMATOID ARTHRITIS
     Dosage: ALSO REPORTED AS 5 MG/KG
     Route: 042
  2. PREDNISOLONE [Concomitant]
  3. PREDNISOLONE [Concomitant]
     Indication: DRUG USE FOR UNKNOWN INDICATION
  4. METHOTREXATE [Concomitant]
     Indication: DRUG USE FOR UNKNOWN INDICATION
     Route: 048
  5. TODOLAC [Concomitant]
  6. ATACAND [Concomitant]
  7. NORVASC [Concomitant]
  8. ZARATOR [Concomitant]

REACTIONS (2)
  - COLORECTAL CANCER [None]
  - CYSTITIS [None]
